FAERS Safety Report 21205403 (Version 3)
Quarter: 2022Q3

REPORT INFORMATION
  Report Type: Spontaneous
  Country: US (occurrence: US)
  Receive Date: 20220812
  Receipt Date: 20220902
  Transmission Date: 20221026
  Serious: No
  Sender: FDA-Public Use
  Company Number: US-NOVARTISTESTPH-NVSC2022US182424

PATIENT
  Sex: Female

DRUGS (2)
  1. TAFINLAR [Suspect]
     Active Substance: DABRAFENIB MESYLATE
     Indication: Squamous cell carcinoma of skin
     Dosage: 150 MG, QD (BY MOUTH)
     Route: 065
     Dates: start: 20210206
  2. MEKINIST [Suspect]
     Active Substance: TRAMETINIB DIMETHYL SULFOXIDE
     Indication: Squamous cell carcinoma of skin
     Dosage: 2 MG, QD (BY MOUTH)
     Route: 065
     Dates: start: 20210206

REACTIONS (2)
  - Visual impairment [Unknown]
  - Product use in unapproved indication [Unknown]
